FAERS Safety Report 4378770-0 (Version None)
Quarter: 2004Q2

REPORT INFORMATION
  Report Type: 
  Country: None (occurrence: None)
  Receive Date: 20040609
  Receipt Date: 20040525
  Transmission Date: 20050107
  Serious: Yes (Hospitalization, Other)
  Sender: FDA-Public Use
  Company Number: USA040568452

PATIENT
  Age: 21 Year
  Sex: Female
  Weight: 91 kg

DRUGS (1)
  1. ZYPREXA [Suspect]
     Indication: SCHIZOAFFECTIVE DISORDER
     Dosage: 25 MG
     Dates: start: 19980101, end: 20030101

REACTIONS (2)
  - PSYCHOTIC DISORDER [None]
  - WEIGHT INCREASED [None]
